FAERS Safety Report 10950554 (Version 1)
Quarter: 2015Q1

REPORT INFORMATION
  Report Type: Spontaneous
  Country: US (occurrence: US)
  Receive Date: 20150324
  Receipt Date: 20150324
  Transmission Date: 20150721
  Serious: No
  Sender: FDA-Public Use
  Company Number: US-GLAXOSMITHKLINE-US2015036184

PATIENT
  Age: 59 Year
  Sex: Female

DRUGS (10)
  1. GABAPENTIN. [Concomitant]
     Active Substance: GABAPENTIN
  2. TOPIRAMATE. [Concomitant]
     Active Substance: TOPIRAMATE
  3. TRAZODONE [Concomitant]
     Active Substance: TRAZODONE HYDROCHLORIDE
  4. ADVAIR DISKUS [Suspect]
     Active Substance: FLUTICASONE PROPIONATE\SALMETEROL XINAFOATE
     Indication: ASTHMA
     Dosage: 1 PUFF(S), BID
     Route: 055
     Dates: start: 20150306, end: 20150314
  5. LAMICTAL [Concomitant]
     Active Substance: LAMOTRIGINE
  6. ADVAIR DISKUS [Suspect]
     Active Substance: FLUTICASONE PROPIONATE\SALMETEROL XINAFOATE
     Indication: BRONCHITIS
     Dosage: 2 PUFF(S), BID
     Route: 055
     Dates: start: 20150210
  7. PROPRANOLOL [Concomitant]
     Active Substance: PROPRANOLOL\PROPRANOLOL HYDROCHLORIDE
  8. ALBUTEROL NEBULIZER [Concomitant]
     Active Substance: ALBUTEROL
  9. SEROQUEL [Concomitant]
     Active Substance: QUETIAPINE FUMARATE
  10. CLONAZEPAM. [Concomitant]
     Active Substance: CLONAZEPAM

REACTIONS (16)
  - Depression [Not Recovered/Not Resolved]
  - Dyspnoea [Recovered/Resolved]
  - Drug prescribing error [Unknown]
  - Asthenia [Recovered/Resolved]
  - Anxiety [Not Recovered/Not Resolved]
  - Ear pain [Not Recovered/Not Resolved]
  - Paranoia [Not Recovered/Not Resolved]
  - Crying [Unknown]
  - Oral pain [Not Recovered/Not Resolved]
  - Bone pain [Recovered/Resolved]
  - Hypertension [Not Recovered/Not Resolved]
  - Diarrhoea [Not Recovered/Not Resolved]
  - Dry mouth [Not Recovered/Not Resolved]
  - Overdose [Recovered/Resolved]
  - Headache [Not Recovered/Not Resolved]
  - Nausea [Not Recovered/Not Resolved]

NARRATIVE: CASE EVENT DATE: 20150210
